FAERS Safety Report 6660285-8 (Version None)
Quarter: 2010Q1

REPORT INFORMATION
  Report Type: 
  Country: None (occurrence: None)
  Receive Date: 20100331
  Receipt Date: 20100309
  Transmission Date: 20100710
  Serious: No
  Sender: FDA-Public Use
  Company Number: 2010BI001414

PATIENT
  Age: 36 Year
  Sex: Female

DRUGS (2)
  1. TYSABRI [Suspect]
     Indication: MULTIPLE SCLEROSIS
     Route: 042
     Dates: start: 20070319, end: 20080812
  2. TYSABRI [Suspect]
     Route: 042
     Dates: start: 20091030

REACTIONS (2)
  - GAIT DISTURBANCE [None]
  - HEADACHE [None]
